FAERS Safety Report 13064692 (Version 1)
Quarter: 2016Q4

REPORT INFORMATION
  Report Type: Spontaneous
  Country: US (occurrence: US)
  Receive Date: 20161227
  Receipt Date: 20161227
  Transmission Date: 20170207
  Serious: Yes (Life-Threatening, Hospitalization, Disabling, Congenital Anomaly, Other)
  Sender: FDA-Public Use
  Company Number: None

PATIENT
  Age: 37 Year
  Sex: Female
  Weight: 71.28 kg

DRUGS (6)
  1. CYMBALTA [Suspect]
     Active Substance: DULOXETINE HYDROCHLORIDE
  2. SEROQUEL [Suspect]
     Active Substance: QUETIAPINE FUMARATE
  3. HALDOL [Suspect]
     Active Substance: HALOPERIDOL
  4. REMERON [Suspect]
     Active Substance: MIRTAZAPINE
  5. BENZOTROPINE [Suspect]
     Active Substance: BENZTROPINE
     Indication: LEGAL PROBLEM
     Dosage: 1 PILL ONCE A DAY ONE 2 TIMES A DAY BY MOUTH
     Route: 048
     Dates: start: 20160913
  6. PRAZOSIN [Suspect]
     Active Substance: PRAZOSIN

REACTIONS (2)
  - Victim of abuse [None]
  - Wrong drug administered [None]

NARRATIVE: CASE EVENT DATE: 20160522
